FAERS Safety Report 17421352 (Version 1)
Quarter: 2020Q1

REPORT INFORMATION
  Report Type: Spontaneous
  Country: TW (occurrence: TW)
  Receive Date: 20200214
  Receipt Date: 20200214
  Transmission Date: 20200409
  Serious: Yes (Death)
  Sender: FDA-Public Use
  Company Number: TW-CELGENEUS-TWN-20200204478

PATIENT
  Age: 74 Year
  Sex: Female
  Weight: 57.5 kg

DRUGS (1)
  1. LENALIDOMIDE [Suspect]
     Active Substance: LENALIDOMIDE
     Indication: PRODUCT USED FOR UNKNOWN INDICATION
     Dosage: 30 MILLIGRAM
     Route: 048
     Dates: start: 201904, end: 201908

REACTIONS (2)
  - Septic shock [Fatal]
  - Disease progression [Fatal]

NARRATIVE: CASE EVENT DATE: 20191216
